FAERS Safety Report 14653129 (Version 1)
Quarter: 2018Q1

REPORT INFORMATION
  Report Type: Spontaneous
  Country: US (occurrence: US)
  Receive Date: 20180319
  Receipt Date: 20180319
  Transmission Date: 20180509
  Serious: Yes (Hospitalization)
  Sender: FDA-Public Use
  Company Number: US-GBPHLPEH-2018-PEL-003382

PATIENT

DRUGS (2)
  1. GABLOFEN [Suspect]
     Active Substance: BACLOFEN
     Indication: MUSCLE CONTRACTURE
  2. GABLOFEN [Suspect]
     Active Substance: BACLOFEN
     Indication: CEREBRAL PALSY
     Dosage: UNK
     Route: 037

REACTIONS (9)
  - Abdominal discomfort [Recovered/Resolved]
  - Abdominal tenderness [Recovered/Resolved]
  - Faeces hard [Recovered/Resolved]
  - Colitis ischaemic [Unknown]
  - Cystitis noninfective [Unknown]
  - Haematuria [Recovered/Resolved]
  - Tachycardia [Unknown]
  - Constipation [Recovered/Resolved]
  - Gastrointestinal sounds abnormal [Recovered/Resolved]
